FAERS Safety Report 21025347 (Version 4)
Quarter: 2022Q3

REPORT INFORMATION
  Report Type: Report from Study
  Country: FR (occurrence: FR)
  Receive Date: 20220630
  Receipt Date: 20220730
  Transmission Date: 20221026
  Serious: Yes (Hospitalization, Other)
  Sender: FDA-Public Use
  Company Number: FR-STADA-251441

PATIENT
  Age: 21 Year
  Sex: Female
  Weight: 107 kg

DRUGS (4)
  1. ACETAMINOPHEN [Suspect]
     Active Substance: ACETAMINOPHEN
     Indication: Product used for unknown indication
     Dosage: UNK
     Route: 065
  2. PROPRANOLOL [Suspect]
     Active Substance: PROPRANOLOL HYDROCHLORIDE
     Indication: Product used for unknown indication
     Dosage: UNK
     Route: 065
  3. RIVAROXABAN [Suspect]
     Active Substance: RIVAROXABAN
     Indication: Anticoagulant therapy
     Dosage: 420 MILLIGRAM(21 TABLETS OF 20 MG , TOTAL DOSE 420 MG )
     Route: 048
  4. VALPROMIDE [Suspect]
     Active Substance: VALPROMIDE
     Indication: Product used for unknown indication
     Dosage: UNK
     Route: 065

REACTIONS (7)
  - Bradycardia [Unknown]
  - Suicide attempt [Unknown]
  - Drug interaction [Unknown]
  - Poisoning deliberate [Unknown]
  - Toxicity to various agents [Unknown]
  - Intentional overdose [Unknown]
  - Prescription drug used without a prescription [Unknown]
